FAERS Safety Report 7771282-3 (Version None)
Quarter: 2011Q3

REPORT INFORMATION
  Report Type: 
  Country: None (occurrence: None)
  Receive Date: 20110922
  Receipt Date: 20110919
  Transmission Date: 20111222
  Serious: Yes (Congenital Anomaly, Other)
  Sender: FDA-Public Use
  Company Number: US-PFIZER INC-2011190582

PATIENT
  Sex: Female
  Weight: 2.2 kg

DRUGS (15)
  1. PROMETHAZINE [Concomitant]
     Dosage: 25 MG, UNK
     Route: 064
     Dates: start: 20040220
  2. AMBIEN [Concomitant]
     Indication: SLEEP DISORDER
     Dosage: 5MG AND 10MG HALF STRENGTH AS NEEDED
     Route: 064
     Dates: start: 20040220
  3. ZOFRAN [Concomitant]
     Indication: NAUSEA
     Dosage: 4 MG, AS NEEDED EVERY 6 HOURS
     Route: 064
  4. PROCARDIA [Concomitant]
     Indication: HYPERTENSION
     Dosage: 20 MG, EVERY 6 HOURS
     Route: 064
     Dates: start: 20040220
  5. BRETHINE [Concomitant]
     Indication: THREATENED LABOUR
     Dosage: 1.25 MG, UNK
     Route: 064
     Dates: start: 20040130
  6. ZANTAC [Concomitant]
     Indication: DYSPEPSIA
     Dosage: 150 MG, UNK
     Route: 064
  7. PREVACID [Concomitant]
     Dosage: 15 MG, UNK
     Route: 064
  8. CALCIUM CARBONATE [Concomitant]
     Dosage: 1000 MG, AS NEEDED
     Route: 064
  9. BETAMETHASONE [Concomitant]
     Indication: PREMATURE LABOUR
     Dosage: 12.5 MG, UNK
     Route: 064
     Dates: start: 20040130, end: 20040131
  10. BRETHINE [Concomitant]
     Dosage: 5 MG, UNK
     Route: 064
     Dates: start: 20040130
  11. MAGNESIUM SULFATE [Concomitant]
     Dosage: 6GM BOLUS, THEN DRIP AT 3GM/HR
     Route: 064
     Dates: start: 20040219, end: 20040221
  12. PRENATAL VITAMINS [Concomitant]
     Route: 064
  13. ZOLOFT [Suspect]
     Dosage: 50 MG, UNK
     Route: 064
     Dates: start: 20000708
  14. AMPICILLIN [Concomitant]
     Dosage: 2 G
     Route: 064
     Dates: start: 20040220, end: 20040222
  15. DEMEROL [Concomitant]
     Dosage: 75 MG, UNK
     Route: 064
     Dates: start: 20040220

REACTIONS (2)
  - CONGENITAL ANOMALY [None]
  - MATERNAL EXPOSURE DURING PREGNANCY [None]
